FAERS Safety Report 6262847-9 (Version None)
Quarter: 2009Q3

REPORT INFORMATION
  Report Type: 
  Country: None (occurrence: None)
  Receive Date: 20090708
  Receipt Date: 20090630
  Transmission Date: 20100115
  Serious: Yes (Other)
  Sender: FDA-Public Use
  Company Number: CHPA2009US14487

PATIENT
  Age: 18 Year
  Sex: Female

DRUGS (2)
  1. EXCEDRIN (MIGRAINE) [Suspect]
     Indication: EAR INFECTION
     Dosage: 2 DF, QD PRN, ORAL
     Route: 048
     Dates: start: 20090501
  2. EXCEDRIN (MIGRAINE) [Suspect]
     Indication: MIGRAINE
     Dosage: 2 DF, QD PRN, ORAL
     Route: 048
     Dates: start: 20090501

REACTIONS (3)
  - DEPRESSION [None]
  - EAR INFECTION [None]
  - MOOD SWINGS [None]
